FAERS Safety Report 12362238 (Version 2)
Quarter: 2016Q3

REPORT INFORMATION
  Report Type: Spontaneous
  Country: US (occurrence: US)
  Receive Date: 20160512
  Receipt Date: 20160727
  Transmission Date: 20161109
  Serious: Yes (Other)
  Sender: FDA-Public Use
  Company Number: US-MYLANLABS-2016M1019254

PATIENT
  Sex: Female

DRUGS (2)
  1. FONDAPARINUX [Suspect]
     Active Substance: FONDAPARINUX
     Indication: EMBOLIC STROKE
     Dosage: UNK
     Route: 065
     Dates: start: 201503
  2. FONDAPARINUX [Suspect]
     Active Substance: FONDAPARINUX
     Indication: CEREBROVASCULAR ACCIDENT

REACTIONS (4)
  - Cerebrovascular accident [Unknown]
  - Pulmonary embolism [Not Recovered/Not Resolved]
  - Deep vein thrombosis [Not Recovered/Not Resolved]
  - Off label use [Unknown]
